FAERS Safety Report 10889101 (Version 1)
Quarter: 2015Q1

REPORT INFORMATION
  Report Type: Spontaneous
  Country: US (occurrence: US)
  Receive Date: 20150305
  Receipt Date: 20150305
  Transmission Date: 20150721
  Serious: No
  Sender: FDA-Public Use
  Company Number: US-BAYER-2015-033310

PATIENT
  Age: 11 Year
  Sex: Female
  Weight: 45.35 kg

DRUGS (3)
  1. MIDOL [Suspect]
     Active Substance: IBUPROFEN
     Indication: DYSMENORRHOEA
     Dosage: 1 DF, PRN
     Route: 048
     Dates: start: 201408, end: 2014
  2. FLINTSTONES GUMMIES [Concomitant]
     Active Substance: VITAMINS
     Dosage: UNK
     Route: 048
  3. MIDOL [Suspect]
     Active Substance: IBUPROFEN
     Indication: DYSMENORRHOEA
     Dosage: 2 DF, PRN
     Route: 048
     Dates: start: 201412

REACTIONS (3)
  - Drug administered to patient of inappropriate age [None]
  - Drug ineffective [None]
  - Drug administered to patient of inappropriate age [None]

NARRATIVE: CASE EVENT DATE: 201408
